FAERS Safety Report 8249069-7 (Version None)
Quarter: 2012Q2

REPORT INFORMATION
  Report Type: 
  Country: None (occurrence: None)
  Receive Date: 20120402
  Receipt Date: 20120326
  Transmission Date: 20120825
  Serious: No
  Sender: FDA-Public Use
  Company Number: US-PFIZER INC-2012051726

PATIENT
  Sex: Male
  Weight: 77.098 kg

DRUGS (4)
  1. VIAGRA [Suspect]
     Indication: CREST SYNDROME
     Dosage: 25 MG, 2X/DAY
     Route: 048
  2. VIAGRA [Suspect]
     Indication: CARDIOVASCULAR DISORDER
     Dosage: TAKING 1/2 OF 50MG TABLET TWICE A DAY
     Route: 048
     Dates: start: 20120219
  3. CARTIA XT [Concomitant]
     Indication: RAYNAUD'S PHENOMENON
     Dosage: 240 MG, 1X/DAY
  4. VIAGRA [Suspect]

REACTIONS (3)
  - THERAPEUTIC RESPONSE UNEXPECTED [None]
  - ANALGESIC THERAPY [None]
  - WEIGHT DECREASED [None]
